FAERS Safety Report 8399138-6 (Version None)
Quarter: 2012Q2

REPORT INFORMATION
  Report Type: 
  Country: None (occurrence: None)
  Receive Date: 20120531
  Receipt Date: 20120525
  Transmission Date: 20120825
  Serious: No
  Sender: FDA-Public Use
  Company Number: US-PFIZER INC-2012101237

PATIENT
  Sex: Female

DRUGS (1)
  1. OXYCODONE HYDROCHLORIDE [Suspect]
     Indication: PAIN
     Dosage: UNK, Q4 AS NEEDED
     Route: 048
     Dates: start: 20100520, end: 20100521

REACTIONS (3)
  - FORMICATION [None]
  - FEELING JITTERY [None]
  - DRUG HYPERSENSITIVITY [None]
